FAERS Safety Report 12833936 (Version 4)
Quarter: 2016Q4

REPORT INFORMATION
  Report Type: Report from Study
  Country: CN (occurrence: CN)
  Receive Date: 20161010
  Receipt Date: 20161118
  Transmission Date: 20170207
  Serious: Yes (Hospitalization, Other)
  Sender: FDA-Public Use
  Company Number: CN-GILEAD-2016-0236741

PATIENT
  Age: 59 Year
  Sex: Female
  Weight: 66 kg

DRUGS (7)
  1. SILIBININ [Concomitant]
     Active Substance: SILIBININ
     Indication: PROPHYLAXIS
     Dosage: 70 MG, TID
     Route: 048
     Dates: start: 20160929
  2. DIAMMONIUM GLYCYRRHIZINATE [Concomitant]
     Active Substance: HERBALS
     Indication: PROPHYLAXIS
     Dosage: 150 MG, QD
     Route: 042
     Dates: start: 20160924, end: 20160930
  3. COMPOUND AMINO ACID (20AA) [Concomitant]
     Indication: HEPATIC ENCEPHALOPATHY PROPHYLAXIS
     Dosage: 250 ML, QD
     Route: 042
     Dates: start: 20160924, end: 20160930
  4. TENOFOVIR DISOPROXIL FUMARATE. [Suspect]
     Active Substance: TENOFOVIR DISOPROXIL FUMARATE
     Indication: CHRONIC HEPATITIS B
     Dosage: 300 MG, UNK
     Route: 048
     Dates: start: 20160412
  5. MEZLOCILLIN SODIUM [Concomitant]
     Active Substance: MEZLOCILLIN SODIUM
     Indication: INFECTION PROPHYLAXIS
     Dosage: 2 G, TID
     Route: 042
     Dates: start: 20160926, end: 20160930
  6. GANODERMA LUCIDUM [Concomitant]
     Indication: IMMUNE SYSTEM DISORDER
     Dosage: 4 ML, QD
     Route: 042
     Dates: start: 20160924, end: 20160930
  7. PANTOPRAZOLE [Concomitant]
     Active Substance: PANTOPRAZOLE SODIUM
     Indication: PROPHYLAXIS AGAINST GASTROINTESTINAL ULCER
     Dosage: 40 MG, QD
     Route: 042
     Dates: start: 20160926, end: 20160930

REACTIONS (1)
  - Hepatocellular carcinoma [Not Recovered/Not Resolved]

NARRATIVE: CASE EVENT DATE: 20160920
